FAERS Safety Report 19094712 (Version 3)
Quarter: 2024Q1

REPORT INFORMATION
  Report Type: Spontaneous
  Country: IT (occurrence: IT)
  Receive Date: 20210406
  Receipt Date: 20240328
  Transmission Date: 20240410
  Serious: Yes (Hospitalization, Other)
  Sender: FDA-Public Use
  Company Number: IT-CELLTRION INC.-2021IT004306

PATIENT

DRUGS (12)
  1. RITUXIMAB [Suspect]
     Active Substance: RITUXIMAB
     Indication: Glomerulonephritis membranous
     Dosage: 375 MG/M2, QW
     Route: 042
     Dates: start: 201707
  2. RITUXIMAB [Suspect]
     Active Substance: RITUXIMAB
     Dosage: 750 MG
     Route: 042
  3. RITUXIMAB [Suspect]
     Active Substance: RITUXIMAB
     Dosage: FOUR CONSECUTIVE WEEKS
     Route: 042
     Dates: start: 201707
  4. RITUXIMAB [Suspect]
     Active Substance: RITUXIMAB
     Indication: Glomerulonephritis membranous
     Dosage: 750 MG, 1/WEEK; FOUR CONSECUTIVE WEEKS
     Route: 041
     Dates: start: 201707
  5. RITUXIMAB [Suspect]
     Active Substance: RITUXIMAB
     Dosage: 375 MG/M2, QW
     Route: 042
     Dates: start: 201707
  6. RITUXIMAB [Suspect]
     Active Substance: RITUXIMAB
     Dosage: 750 MG
     Route: 041
  7. LAMIVUDINE [Concomitant]
     Active Substance: LAMIVUDINE
     Indication: Antiretroviral therapy
     Dosage: UNK
  8. LAMIVUDINE [Concomitant]
     Active Substance: LAMIVUDINE
     Indication: HIV infection
     Dosage: UNK
     Route: 065
  9. ABACAVIR [Concomitant]
     Active Substance: ABACAVIR
     Indication: Antiretroviral therapy
     Dosage: UNK
  10. ABACAVIR [Concomitant]
     Active Substance: ABACAVIR
     Indication: HIV infection
     Dosage: UNK
     Route: 065
  11. EFAVIRENZ [Concomitant]
     Active Substance: EFAVIRENZ
     Indication: Antiretroviral therapy
     Dosage: UNK
  12. EFAVIRENZ [Concomitant]
     Active Substance: EFAVIRENZ
     Indication: HIV infection
     Dosage: UNK
     Route: 065

REACTIONS (11)
  - CD8 lymphocytes decreased [Unknown]
  - CD4 lymphocytes decreased [Unknown]
  - Pneumonia [Recovered/Resolved]
  - Dyspnoea [Unknown]
  - Pyrexia [Unknown]
  - Pneumonia bacterial [Recovered/Resolved]
  - Neutropenia [Recovered/Resolved]
  - Leukopenia [Unknown]
  - Neutropenia [Recovered/Resolved]
  - Product use in unapproved indication [Unknown]
  - Off label use [Unknown]
